FAERS Safety Report 5124677-0 (Version None)
Quarter: 2006Q4

REPORT INFORMATION
  Report Type: 
  Country: None (occurrence: None)
  Receive Date: 20061011
  Receipt Date: 20051223
  Transmission Date: 20070319
  Serious: Yes (Death, Hospitalization, Other)
  Sender: FDA-Public Use
  Company Number: US-BAYER-200513091BWH

PATIENT
  Age: 74 Year
  Sex: Female
  Weight: 71 kg

DRUGS (16)
  1. SORAFENIB [Suspect]
     Indication: NON-SMALL CELL LUNG CANCER METASTATIC
     Dosage: TOTAL DAILY DOSE: 800 MG  UNIT DOSE: 200 MG
     Route: 048
     Dates: start: 20051118, end: 20051215
  2. SORAFENIB [Suspect]
     Dosage: TOTAL DAILY DOSE: 400 MG  UNIT DOSE: 200 MG
     Route: 048
     Dates: start: 20051221, end: 20060316
  3. COMBIVENT [Concomitant]
     Dosage: TOTAL DAILY DOSE: 8 PUFF
     Route: 055
  4. ASPIRIN [Concomitant]
  5. NITROGLYCERIN [Concomitant]
  6. CARBOPLATIN [Concomitant]
     Dates: start: 20030501, end: 20030701
  7. TAXOL [Concomitant]
     Dates: start: 20030501, end: 20030701
  8. PLACEBO OR NEOVASTAT [Concomitant]
     Dates: start: 20030501, end: 20030701
  9. SHARK CARTILAGE [Concomitant]
     Dates: start: 20030501, end: 20030701
  10. ALIMTA [Concomitant]
     Dates: start: 20041014
  11. GEMZAR [Concomitant]
     Dates: start: 20041014
  12. TAXOTERE [Concomitant]
     Dates: start: 20050505, end: 20050823
  13. BUDESONIDE/ALBUTEROL/IPRATROPIUM NEBULIZER [Concomitant]
  14. COMPAZINE [Concomitant]
     Indication: NAUSEA
  15. DERMA-SMOOTHE/FS [Concomitant]
     Route: 061
  16. VANICREAM [Concomitant]

REACTIONS (19)
  - ATRIAL FIBRILLATION [None]
  - ATRIAL FLUTTER [None]
  - BASAL CELL CARCINOMA [None]
  - COLLAPSE OF LUNG [None]
  - DERMAL CYST [None]
  - DIASTOLIC DYSFUNCTION [None]
  - DYSPNOEA EXERTIONAL [None]
  - LUNG NEOPLASM MALIGNANT [None]
  - METASTASES TO BONE [None]
  - MITRAL VALVE INCOMPETENCE [None]
  - PLEURAL EFFUSION [None]
  - PNEUMONIA STAPHYLOCOCCAL [None]
  - PULMONARY EMBOLISM [None]
  - PULMONARY FIBROSIS [None]
  - PULMONARY HYPERTENSION [None]
  - PULMONARY OEDEMA [None]
  - STENOTROPHOMONAS INFECTION [None]
  - SUPRAVENTRICULAR EXTRASYSTOLES [None]
  - TRICUSPID VALVE INCOMPETENCE [None]
